FAERS Safety Report 14787228 (Version 1)
Quarter: 2018Q2

REPORT INFORMATION
  Report Type: Report from Study
  Country: US (occurrence: US)
  Receive Date: 20180421
  Receipt Date: 20180421
  Transmission Date: 20180711
  Serious: Yes (Hospitalization)
  Sender: FDA-Public Use
  Company Number: US-VIFOR (INTERNATIONAL) INC.-VIT-2017-05643

PATIENT
  Age: 75 Year
  Sex: Female

DRUGS (15)
  1. FERROUS SULFATE. [Concomitant]
     Active Substance: FERROUS SULFATE
  2. LISINOPRIL. [Concomitant]
     Active Substance: LISINOPRIL
  3. VELTASSA [Suspect]
     Active Substance: PATIROMER
     Indication: HYPERKALAEMIA
     Route: 048
     Dates: start: 20170427
  4. FISH OIL [Concomitant]
     Active Substance: FISH OIL
  5. FUROSEMIDE. [Concomitant]
     Active Substance: FUROSEMIDE
  6. ICAPS [Concomitant]
     Active Substance: MINERALS\VITAMINS
  7. LEVOTHYROXINE. [Concomitant]
     Active Substance: LEVOTHYROXINE
  8. BISOPROLOL [Concomitant]
     Active Substance: BISOPROLOL
  9. VITAMINS NOS [Concomitant]
     Active Substance: VITAMINS
  10. NORVASC [Concomitant]
     Active Substance: AMLODIPINE BESYLATE
  11. COLECALCIFEROL [Concomitant]
     Active Substance: CHOLECALCIFEROL
  12. AMLODIPINE [Concomitant]
     Active Substance: AMLODIPINE BESYLATE
  13. VELTASSA [Suspect]
     Active Substance: PATIROMER
     Route: 048
     Dates: start: 20170407
  14. LIPITOR [Concomitant]
     Active Substance: ATORVASTATIN CALCIUM
  15. NICOTINIC ACID [Concomitant]
     Active Substance: NIACIN

REACTIONS (4)
  - Off label use [Unknown]
  - Gallbladder operation [Not Recovered/Not Resolved]
  - Drug dose omission [Unknown]
  - Dialysis [Not Recovered/Not Resolved]

NARRATIVE: CASE EVENT DATE: 20170427
